FAERS Safety Report 8974097 (Version 1)
Quarter: 2012Q4

REPORT INFORMATION
  Report Type: Spontaneous
  Country: US (occurrence: None)
  Receive Date: 20121217
  Receipt Date: 20121217
  Transmission Date: 20130627
  Serious: Yes (Hospitalization)
  Sender: FDA-Public Use
  Company Number: None

PATIENT
  Sex: Male
  Weight: 71.5 kg

DRUGS (2)
  1. TEMSIROLIMUS [Suspect]
     Route: 041
     Dates: start: 20120712, end: 20121025
  2. SEE INITIAL REPORT AND FOLLOW UP REPORT #1 [Concomitant]

REACTIONS (2)
  - Pneumocystis jiroveci pneumonia [None]
  - Chills [None]
